FAERS Safety Report 5695884-3 (Version None)
Quarter: 2008Q2

REPORT INFORMATION
  Report Type: 
  Country: None (occurrence: None)
  Receive Date: 20080403
  Receipt Date: 20080403
  Transmission Date: 20081010
  Serious: Yes (Other)
  Sender: FDA-Public Use
  Company Number: None

PATIENT
  Age: 9 Year
  Sex: Male
  Weight: 27.2158 kg

DRUGS (2)
  1. SINGULAIR [Suspect]
     Indication: EPISTAXIS
     Dosage: ONE PILL DAILY UNK
     Dates: start: 20061115, end: 20080327
  2. SINGULAIR [Suspect]
     Indication: MULTIPLE ALLERGIES
     Dosage: ONE PILL DAILY UNK
     Dates: start: 20061115, end: 20080327

REACTIONS (13)
  - ABNORMAL BEHAVIOUR [None]
  - ADVERSE DRUG REACTION [None]
  - AGGRESSION [None]
  - ANGER [None]
  - DECREASED INTEREST [None]
  - DEPRESSION [None]
  - DISTURBANCE IN ATTENTION [None]
  - DRY EYE [None]
  - EDUCATIONAL PROBLEM [None]
  - INTENTIONAL SELF-INJURY [None]
  - MOOD SWINGS [None]
  - SUICIDAL IDEATION [None]
  - WEIGHT INCREASED [None]
